FAERS Safety Report 23432983 (Version 1)
Quarter: 2024Q1

REPORT INFORMATION
  Report Type: Spontaneous
  Country: CN (occurrence: CN)
  Receive Date: 20240123
  Receipt Date: 20240123
  Transmission Date: 20240410
  Serious: Yes (Hospitalization, Other)
  Sender: FDA-Public Use
  Company Number: CL-SA-SAC20240118001614

PATIENT
  Age: 74 Year
  Sex: Female
  Weight: 55 kg

DRUGS (2)
  1. CLOPIDOGREL BISULFATE [Suspect]
     Active Substance: CLOPIDOGREL BISULFATE
     Indication: Thrombosis
     Dosage: 75 MG, QD
     Route: 048
     Dates: start: 20231226, end: 20240106
  2. ASPIRIN [Suspect]
     Active Substance: ASPIRIN
     Indication: Thrombosis
     Dosage: 100 MG, QD
     Route: 048
     Dates: start: 20231226, end: 20240106

REACTIONS (8)
  - Upper gastrointestinal haemorrhage [Recovering/Resolving]
  - Nausea [Recovering/Resolving]
  - Haematemesis [Recovering/Resolving]
  - Vomiting [Recovering/Resolving]
  - Haemoglobin decreased [Recovering/Resolving]
  - Blood pressure increased [Recovering/Resolving]
  - Somnolence [Recovering/Resolving]
  - Body temperature increased [Recovering/Resolving]

NARRATIVE: CASE EVENT DATE: 20240106
